FAERS Safety Report 4836207-9 (Version None)
Quarter: 2005Q4

REPORT INFORMATION
  Report Type: 
  Country: None (occurrence: None)
  Receive Date: 20051118
  Receipt Date: 20051108
  Transmission Date: 20060501
  Serious: Yes (Death)
  Sender: FDA-Public Use
  Company Number: 200510728BFR

PATIENT
  Age: 28 Year
  Sex: Male

DRUGS (4)
  1. CIPROFLOXACIN [Suspect]
     Indication: ABDOMINAL PAIN
     Dosage: 800 MG, TOTAL DAILY, INTRAVENOUS
     Route: 042
     Dates: start: 20031109
  2. CIPROFLOXACIN [Suspect]
     Indication: APPENDICITIS
     Dosage: 800 MG, TOTAL DAILY, INTRAVENOUS
     Route: 042
     Dates: start: 20031109
  3. PRO-DAFALGAN [Concomitant]
  4. VISCERALGINE [Concomitant]

REACTIONS (5)
  - APPENDICITIS [None]
  - GANGRENE [None]
  - PERITONITIS [None]
  - SEPSIS [None]
  - SUDDEN DEATH [None]
